FAERS Safety Report 9180543 (Version 2)
Quarter: 2013Q2

REPORT INFORMATION
  Report Type: Spontaneous
  Country: US (occurrence: None)
  Receive Date: 20130320
  Receipt Date: 20130401
  Transmission Date: 20140414
  Serious: Yes (Other)
  Sender: FDA-Public Use
  Company Number: 13-01226

PATIENT
  Age: 52 Year
  Sex: Female

DRUGS (7)
  1. ASTHMANEFRIN [Suspect]
     Indication: ASTHMA
     Dosage: 2 INHALATIONS ONCE 054?
     Dates: start: 20130309
  2. ASTHMANEFRIN [Suspect]
     Indication: EMPHYSEMA
     Dosage: 2 INHALATIONS ONCE 054?
     Dates: start: 20130309
  3. PROMETHAZINE WITH COUGH SYRUP [Concomitant]
  4. DIURETIC [Concomitant]
  5. ASPIRIN [Concomitant]
  6. LOSARTAN [Concomitant]
  7. LIPITOR [Concomitant]

REACTIONS (4)
  - Throat irritation [None]
  - Glossitis [None]
  - Haemoptysis [None]
  - Tongue disorder [None]
